FAERS Safety Report 6125940-7 (Version None)
Quarter: 2009Q1

REPORT INFORMATION
  Report Type: 
  Country: None (occurrence: None)
  Receive Date: 20090318
  Receipt Date: 20090304
  Transmission Date: 20090719
  Serious: Yes (Hospitalization, Other)
  Sender: FDA-Public Use
  Company Number: 2009AL001336

PATIENT
  Age: 44 Year
  Sex: Male

DRUGS (23)
  1. FEVERALL [Suspect]
     Indication: MUSCLE SPASMS
     Dosage: 1 G, QID, PO
     Route: 048
  2. IRBESARTAN [Concomitant]
  3. LISINOPRIL [Concomitant]
  4. RIMONABANT [Concomitant]
  5. CODEINE SUL TAB [Concomitant]
  6. ACETYLSALICYLIC ACID [Concomitant]
  7. OMEPRAZOLE [Concomitant]
  8. FUROSEMIDE [Concomitant]
  9. ISOSORBIDE MONONITRATE [Concomitant]
  10. ISPAGHULA [Concomitant]
  11. VESICARE [Concomitant]
  12. NITROGLYCERIN [Concomitant]
  13. ATENOLOL [Concomitant]
  14. QUININE SULPHATE [Concomitant]
  15. TRIMETHOPRIM [Concomitant]
  16. NITRAZEPAM [Concomitant]
  17. OMACOR [Concomitant]
  18. LIDOCAINE [Concomitant]
  19. ATORVASTATIN [Concomitant]
  20. BISOPROLOL [Concomitant]
  21. DILTIAZEM [Concomitant]
  22. SOLIFENACIN SUCCINATE [Concomitant]
  23. SPIRONOLACTONE [Suspect]
     Dosage: 50 MG; QD ; UNK

REACTIONS (14)
  - ATRIAL FIBRILLATION [None]
  - CONFUSIONAL STATE [None]
  - DYSPEPSIA [None]
  - FEAR OF EATING [None]
  - GASTROOESOPHAGEAL REFLUX DISEASE [None]
  - HAEMORRHAGE [None]
  - HAEMORRHOIDS [None]
  - HYPERTENSION [None]
  - NAUSEA [None]
  - PYREXIA [None]
  - RENAL FAILURE [None]
  - RENAL PAIN [None]
  - VOMITING [None]
  - WEIGHT INCREASED [None]
